FAERS Safety Report 6568356-1 (Version None)
Quarter: 2010Q1

REPORT INFORMATION
  Report Type: 
  Country: None (occurrence: None)
  Receive Date: 20100203
  Receipt Date: 20100128
  Transmission Date: 20100710
  Serious: Yes (Hospitalization)
  Sender: FDA-Public Use
  Company Number: US-ELI_LILLY_AND_COMPANY-US201001001344

PATIENT
  Sex: Female
  Weight: 68 kg

DRUGS (20)
  1. PEMETREXED [Suspect]
     Indication: NON-SMALL CELL LUNG CANCER
     Dosage: 500 MG/M2, OTHER
     Route: 042
     Dates: start: 20090603
  2. CARBOPLATIN [Suspect]
     Indication: NON-SMALL CELL LUNG CANCER
     Dosage: 6 D/F, OTHER
     Route: 042
     Dates: start: 20090603, end: 20090805
  3. BEVACIZUMAB [Suspect]
     Indication: NON-SMALL CELL LUNG CANCER
     Dosage: 15 MG/KG, OTHER
     Route: 042
     Dates: start: 20090603
  4. FOLIC ACID [Concomitant]
     Indication: SUPPLEMENTATION THERAPY
     Dosage: 1 MG, DAILY (1/D)
     Route: 048
     Dates: start: 20090527
  5. CLONAZEPAM [Concomitant]
     Indication: INSOMNIA
     Dosage: 1 MG, EACH EVENING
     Route: 048
     Dates: start: 20090528
  6. DRISDOL [Concomitant]
     Indication: MINERAL DEFICIENCY
     Dosage: 50000 U, UNK
     Dates: start: 20090409
  7. LYRICA [Concomitant]
     Indication: FIBROMYALGIA
     Dosage: 50 MG, 3/D
     Route: 048
     Dates: start: 20080616
  8. LOPRESSOR [Concomitant]
     Indication: HYPERTENSION
     Dosage: 12.5 MG, DAILY (1/D)
     Route: 048
     Dates: start: 20040101
  9. TRAMADOL [Concomitant]
     Indication: FIBROMYALGIA
     Dosage: 50 MG, AS NEEDED
     Route: 048
     Dates: start: 20090528
  10. OMEPRAZOLE [Concomitant]
     Indication: GASTROOESOPHAGEAL REFLUX DISEASE
     Dosage: 20 MG, DAILY (1/D)
     Route: 048
     Dates: start: 20090701
  11. ALBUTEROL [Concomitant]
     Indication: DYSPNOEA
     Dosage: UNK, AS NEEDED
     Route: 055
     Dates: start: 20091118
  12. VITAMIN B-12 [Concomitant]
     Indication: SUPPLEMENTATION THERAPY
     Dosage: 1000 UG, MONTHLY (1/M)
     Route: 030
  13. VITAMIN D [Concomitant]
     Indication: SUPPLEMENTATION THERAPY
     Dosage: 1000 U, DAILY (1/D)
     Route: 048
  14. SENNA [Concomitant]
     Indication: CONSTIPATION
     Dosage: 50 MG, AS NEEDED
     Route: 048
  15. PROCHLORPERAZINE MALEATE [Concomitant]
     Indication: NAUSEA
     Dosage: 10 MG, AS NEEDED
     Route: 048
  16. ATROVENT [Concomitant]
     Dosage: 17 UG, UNK
     Route: 055
  17. ACETAMINOPHEN W/ CODEINE [Concomitant]
     Indication: PAIN
     Dosage: 1 D/F, 2/D
     Route: 048
  18. ELAVIL [Concomitant]
     Dosage: 25 MG, 2/D
     Route: 048
  19. BETAMETHASONE DIPROPIONATE [Concomitant]
     Dosage: UNK, 2/D
  20. LEVAQUIN [Concomitant]
     Indication: PYREXIA
     Dates: start: 20091101

REACTIONS (2)
  - ANAEMIA [None]
  - DYSPNOEA [None]
